FAERS Safety Report 19328183 (Version 9)
Quarter: 2021Q3

REPORT INFORMATION
  Report Type: Report from Study
  Country: KR (occurrence: KR)
  Receive Date: 20210528
  Receipt Date: 20210820
  Transmission Date: 20211014
  Serious: Yes (Hospitalization)
  Sender: FDA-Public Use
  Company Number: KR-EISAI MEDICAL RESEARCH-EC-2021-093389

PATIENT
  Age: 64 Year
  Sex: Female
  Weight: 65.7 kg

DRUGS (14)
  1. STILNOX [Concomitant]
     Active Substance: ZOLPIDEM TARTRATE
     Dates: start: 20210512
  2. MAGNESIUM OXIDE. [Concomitant]
     Active Substance: MAGNESIUM OXIDE
     Dates: start: 20210512
  3. LENVATINIB [Suspect]
     Active Substance: LENVATINIB
     Indication: BILE DUCT CANCER
     Dosage: UP TO 35 CYCLES OR UNTIL DISEASE PROGRESSION
     Route: 048
     Dates: start: 20210512, end: 20210515
  4. TARGIN [Concomitant]
     Active Substance: NALOXONE HYDROCHLORIDE\OXYCODONE HYDROCHLORIDE
     Dates: start: 20210512
  5. LENVATINIB [Suspect]
     Active Substance: LENVATINIB
     Dosage: UP TO 35 CYCLES OR UNTIL DISEASE PROGRESSION
     Route: 048
     Dates: start: 20210524
  6. PEMBROLIZUMAB. [Suspect]
     Active Substance: PEMBROLIZUMAB
     Indication: BILE DUCT CANCER
     Dosage: UP TO 35 CYCLES OR UNTIL DISEASE PROGRESSION
     Route: 041
     Dates: start: 20210512, end: 20210512
  7. GASTER [Concomitant]
     Active Substance: FAMOTIDINE
     Dates: start: 20210518
  8. FOICHOL [Concomitant]
     Dates: start: 20210518
  9. URSA [Concomitant]
     Active Substance: URSODIOL
     Dates: start: 20210512
  10. IRCODON [Concomitant]
     Active Substance: OXYCODONE HYDROCHLORIDE
     Dates: start: 20210430
  11. TIROPA [Concomitant]
     Active Substance: TIROPRAMIDE
     Dates: start: 20210518
  12. PEMBROLIZUMAB. [Suspect]
     Active Substance: PEMBROLIZUMAB
     Dosage: UP TO 35 CYCLES OR UNTIL DISEASE PROGRESSION
     Route: 041
     Dates: start: 20210602
  13. NORZYME [Concomitant]
     Dates: start: 20210512
  14. GODEX [Concomitant]
     Dates: start: 20210512

REACTIONS (1)
  - Melaena [Recovered/Resolved]

NARRATIVE: CASE EVENT DATE: 20210518
